FAERS Safety Report 7441060-3 (Version None)
Quarter: 2011Q2

REPORT INFORMATION
  Report Type: 
  Country: None (occurrence: None)
  Receive Date: 20110427
  Receipt Date: 20110419
  Transmission Date: 20111010
  Serious: Yes (Other)
  Sender: FDA-Public Use
  Company Number: US-RB-026140-11

PATIENT
  Age: 51 Year
  Sex: Male

DRUGS (1)
  1. SUBOXONE [Suspect]
     Indication: PRODUCT USED FOR UNKNOWN INDICATION
     Dosage: DOSAGE INFORMATION UNKNOWN
     Route: 065

REACTIONS (8)
  - INSOMNIA [None]
  - VOMITING [None]
  - PARAESTHESIA [None]
  - SPEECH DISORDER [None]
  - SUICIDAL IDEATION [None]
  - MUSCLE SPASMS [None]
  - PAIN [None]
  - DRUG WITHDRAWAL SYNDROME [None]
